FAERS Safety Report 5692494-9 (Version None)
Quarter: 2008Q2

REPORT INFORMATION
  Report Type: 
  Country: None (occurrence: None)
  Receive Date: 20080328
  Receipt Date: 20071203
  Transmission Date: 20081010
  Serious: No
  Sender: FDA-Public Use
  Company Number: US-WYE-H00684007

PATIENT
  Age: 64 Year
  Sex: Male
  Weight: 68.1 kg

DRUGS (3)
  1. TORISEL [Suspect]
     Indication: RENAL CELL CARCINOMA
     Dosage: 25 MG 1X PER 1 WK, INTRAVENOUS
     Route: 042
     Dates: start: 20070906, end: 20070928
  2. ZOMETA [Concomitant]
  3. NORVASC [Concomitant]

REACTIONS (1)
  - BLOOD CREATININE INCREASED [None]
